FAERS Safety Report 5534398-8 (Version None)
Quarter: 2007Q4

REPORT INFORMATION
  Report Type: 
  Country: None (occurrence: None)
  Receive Date: 20071120
  Receipt Date: 20070907
  Transmission Date: 20080405
  Serious: No
  Sender: FDA-Public Use
  Company Number: 2007SP017895

PATIENT

DRUGS (1)
  1. NOXAFIL [Suspect]
     Indication: PNEUMONIA FUNGAL
     Dosage: PO ; NGT
     Route: 048

REACTIONS (1)
  - DRUG LEVEL DECREASED [None]
